FAERS Safety Report 8174438 (Version 3)
Quarter: 2013Q2

REPORT INFORMATION
  Report Type: Report from Study
  Country: FR (occurrence: FR)
  Receive Date: 20111010
  Receipt Date: 20130620
  Transmission Date: 20140414
  Serious: Yes (Other)
  Sender: FDA-Public Use
  Company Number: FR-NOVOPROD-336448

PATIENT
  Age: 67 Year
  Sex: Male
  Weight: 93 kg

DRUGS (7)
  1. VICTOZA [Suspect]
     Indication: TYPE 2 DIABETES MELLITUS
     Dosage: 1.2 MG, QD
     Route: 058
     Dates: start: 20101202
  2. LIPANTHYL [Concomitant]
     Dosage: UNK
     Dates: start: 2006
  3. CRESTOR [Concomitant]
     Dosage: UNK
     Dates: start: 2006
  4. JANUVIA [Concomitant]
     Dosage: UNK
     Dates: start: 200804
  5. AMAREL [Concomitant]
     Dosage: 1 TAB, QD
     Dates: start: 200903, end: 20120524
  6. COAPROVEL [Concomitant]
  7. AMLOR [Concomitant]

REACTIONS (1)
  - Renal neoplasm [Not Recovered/Not Resolved]
